FAERS Safety Report 14775371 (Version 1)
Quarter: 2018Q2

REPORT INFORMATION
  Report Type: Spontaneous
  Country: US (occurrence: US)
  Receive Date: 20180412
  Receipt Date: 20180412
  Transmission Date: 20180711
  Serious: No
  Sender: FDA-Public Use
  Company Number: None

PATIENT
  Age: 77 Year
  Sex: Female
  Weight: 81.45 kg

DRUGS (6)
  1. IMATINIB [Suspect]
     Active Substance: IMATINIB
     Indication: LEUKAEMIA
     Route: 048
     Dates: start: 20180316
  2. ASPIRIN EC [Concomitant]
     Active Substance: ASPIRIN
  3. FUROSEMIDE. [Concomitant]
     Active Substance: FUROSEMIDE
  4. METOPROLOL SUCCINATE. [Concomitant]
     Active Substance: METOPROLOL SUCCINATE
  5. VITAMIN B12 [Concomitant]
     Active Substance: CYANOCOBALAMIN
  6. HYDROXYUREA. [Concomitant]
     Active Substance: HYDROXYUREA

REACTIONS (2)
  - Decreased appetite [None]
  - Nausea [None]

NARRATIVE: CASE EVENT DATE: 20180411
